FAERS Safety Report 23489583 (Version 1)
Quarter: 2024Q1

REPORT INFORMATION
  Report Type: Spontaneous
  Country: US (occurrence: None)
  Receive Date: 20240206
  Receipt Date: 20240206
  Transmission Date: 20240410
  Serious: No
  Sender: FDA-Public Use
  Company Number: US-ROCHE-3332914

PATIENT
  Sex: Female

DRUGS (2)
  1. XOLAIR [Suspect]
     Active Substance: OMALIZUMAB
     Indication: Urticaria
     Dosage: 2 INJECTIONS
     Route: 042
  2. KETOTIFEN [Concomitant]
     Active Substance: KETOTIFEN

REACTIONS (2)
  - Nasal congestion [Recovered/Resolved]
  - Sneezing [Recovered/Resolved]
